FAERS Safety Report 16746571 (Version 1)
Quarter: 2019Q3

REPORT INFORMATION
  Report Type: Spontaneous
  Country: US (occurrence: US)
  Receive Date: 20190709
  Receipt Date: 20190709
  Transmission Date: 20191005
  Serious: Yes (Hospitalization)
  Sender: FDA-Public Use
  Company Number: None

PATIENT
  Age: 52 Year
  Sex: Female
  Weight: 99.79 kg

DRUGS (6)
  1. HCTZ [Concomitant]
     Active Substance: HYDROCHLOROTHIAZIDE
  2. BUPROPRIONI [Concomitant]
  3. TRIUMEQ [Suspect]
     Active Substance: ABACAVIR SULFATE\DOLUTEGRAVIR SODIUM\LAMIVUDINE
     Indication: HIV INFECTION
     Route: 048
     Dates: start: 20160908, end: 20161015
  4. WITCH HAZEL. [Concomitant]
     Active Substance: WITCH HAZEL
  5. RAMELTEON [Concomitant]
     Active Substance: RAMELTEON
  6. ATRIPIA [Concomitant]

REACTIONS (8)
  - Nausea [None]
  - Haematemesis [None]
  - Vomiting [None]
  - Diarrhoea [None]
  - Decreased appetite [None]
  - Abdominal pain [None]
  - Pancreatitis [None]
  - Headache [None]

NARRATIVE: CASE EVENT DATE: 20161015
